FAERS Safety Report 4895055-4 (Version None)
Quarter: 2006Q1

REPORT INFORMATION
  Report Type: 
  Country: None (occurrence: None)
  Receive Date: 20060130
  Receipt Date: 20060111
  Transmission Date: 20060701
  Serious: Yes (Death, Life-Threatening, Hospitalization)
  Sender: FDA-Public Use
  Company Number: PHRM2006FR00502

PATIENT
  Age: 71 Year
  Sex: Female

DRUGS (6)
  1. KARDEGIC [Suspect]
     Dosage: 75 MG, QD
     Route: 048
  2. KENZEN [Suspect]
     Dosage: 8 MG/DAY
     Route: 048
  3. CELEBREX [Suspect]
     Dosage: 1 DF, QD
     Route: 048
  4. CELECTOL [Suspect]
     Dosage: 200 MG, QD
     Route: 048
  5. AMLOR [Suspect]
     Dosage: 5 MG, QD
     Route: 048
  6. NITRODERM [Suspect]
     Dosage: 1 DF, QD
     Route: 062

REACTIONS (4)
  - CARDIAC ARREST [None]
  - CEREBROVASCULAR ACCIDENT [None]
  - MENINGITIS [None]
  - RESPIRATORY ARREST [None]
